FAERS Safety Report 7372798-4 (Version None)
Quarter: 2011Q1

REPORT INFORMATION
  Report Type: 
  Country: None (occurrence: None)
  Receive Date: 20110324
  Receipt Date: 20110316
  Transmission Date: 20110831
  Serious: Yes (Hospitalization)
  Sender: FDA-Public Use
  Company Number: US-ROCHE-760124

PATIENT
  Sex: Female

DRUGS (4)
  1. COUMADIN [Concomitant]
     Dosage: OTHER INDICATION: LUPUS ANTI-COAGULANT DISORDER
  2. RIBAVIRIN [Suspect]
     Indication: HEPATITIS C
     Dosage: DIVIDED DOSES
     Route: 048
     Dates: start: 20110201
  3. PEGASYS [Suspect]
     Indication: HEPATITIS C
     Dosage: PRE-FILLED SYRINGE
     Route: 058
     Dates: start: 20110201
  4. PERCOCET [Concomitant]
     Indication: INTERVERTEBRAL DISC DISORDER

REACTIONS (12)
  - MYALGIA [None]
  - VOMITING [None]
  - COUGH [None]
  - INSOMNIA [None]
  - SYRINGE ISSUE [None]
  - PYREXIA [None]
  - FATIGUE [None]
  - HYPERSENSITIVITY [None]
  - SPLENOMEGALY [None]
  - PNEUMONIA [None]
  - MEDICATION ERROR [None]
  - DIARRHOEA [None]
